FAERS Safety Report 6639077-1 (Version None)
Quarter: 2010Q1

REPORT INFORMATION
  Report Type: 
  Country: None (occurrence: None)
  Receive Date: 20100317
  Receipt Date: 20100312
  Transmission Date: 20100710
  Serious: Yes (Death, Other)
  Sender: FDA-Public Use
  Company Number: FR-ABBOTT-10P-056-0631819-00

PATIENT
  Age: 47 Year
  Sex: Female
  Weight: 76 kg

DRUGS (9)
  1. HUMIRA [Suspect]
     Indication: RHEUMATOID ARTHRITIS
     Route: 058
     Dates: start: 20090101
  2. HYDROCORTANCYL [Concomitant]
     Indication: RENAL FAILURE
     Dates: start: 20081001
  3. CYMBALTA [Concomitant]
     Indication: DEPRESSION
  4. METHOTREXATE [Concomitant]
     Indication: DRUG USE FOR UNKNOWN INDICATION
  5. LAROXYL [Concomitant]
     Indication: DEPRESSION
  6. LAROXYL [Concomitant]
     Indication: PAIN
  7. LYSANXIA [Concomitant]
     Indication: ANXIETY
  8. NOCTAMIDE [Concomitant]
     Indication: SLEEP DISORDER
  9. OXYCONTIN [Concomitant]
     Indication: PAIN

REACTIONS (4)
  - CHEST DISCOMFORT [None]
  - INFLAMMATION [None]
  - MALAISE [None]
  - SUDDEN DEATH [None]
